FAERS Safety Report 13992515 (Version 1)
Quarter: 2017Q3

REPORT INFORMATION
  Report Type: Spontaneous
  Country: US (occurrence: US)
  Receive Date: 20170920
  Receipt Date: 20170920
  Transmission Date: 20171128
  Serious: No
  Sender: FDA-Public Use
  Company Number: US-RECKITT BENCKISER HEALTHCARE INT LIMITED-RB-90913-2017

PATIENT
  Age: 26 Year
  Sex: Male

DRUGS (1)
  1. MUCINEX MAXIMUM STRENGTH [Suspect]
     Active Substance: GUAIFENESIN
     Indication: VIRAL UPPER RESPIRATORY TRACT INFECTION
     Dosage: 2400 MG, SINGLE
     Route: 048
     Dates: start: 20170311

REACTIONS (3)
  - Accidental overdose [Unknown]
  - Expired product administered [Unknown]
  - Drug ineffective [Not Recovered/Not Resolved]

NARRATIVE: CASE EVENT DATE: 20170311
